FAERS Safety Report 14518450 (Version 2)
Quarter: 2018Q2

REPORT INFORMATION
  Report Type: Spontaneous
  Country: US (occurrence: US)
  Receive Date: 20180212
  Receipt Date: 20180422
  Transmission Date: 20180711
  Serious: Yes (Death, Other)
  Sender: FDA-Public Use
  Company Number: US-APOTEX-2018AP006697

PATIENT
  Age: 37 Year
  Sex: Female

DRUGS (1)
  1. TRAZODONE [Suspect]
     Active Substance: TRAZODONE HYDROCHLORIDE
     Indication: PRODUCT USED FOR UNKNOWN INDICATION
     Dosage: 6.45 G, UNK
     Route: 048

REACTIONS (5)
  - Intentional overdose [Unknown]
  - Inappropriate antidiuretic hormone secretion [Unknown]
  - Suicide attempt [Fatal]
  - Brain oedema [Fatal]
  - Seizure [Unknown]
